FAERS Safety Report 7798062-7 (Version None)
Quarter: 2011Q4

REPORT INFORMATION
  Report Type: 
  Country: None (occurrence: None)
  Receive Date: 20111005
  Receipt Date: 20111003
  Transmission Date: 20120403
  Serious: Yes (Hospitalization)
  Sender: FDA-Public Use
  Company Number: JP-ABBOTT-11P-087-0853715-00

PATIENT
  Sex: Male
  Weight: 76 kg

DRUGS (9)
  1. LACTOMIN [Concomitant]
     Indication: DISBACTERIOSIS
     Dosage: 6 GRAM DAILY
     Route: 048
  2. HUMIRA [Suspect]
     Indication: CROHN'S DISEASE
     Route: 058
     Dates: start: 20110224, end: 20110224
  3. NATURAL ALUMINUN SILICATE [Concomitant]
     Indication: DIARRHOEA
     Dosage: 3 GRAM DAILY
     Route: 048
  4. FOLIC ACID [Concomitant]
     Indication: FOLATE DEFICIENCY
     Dosage: 15 MG DAILY
     Route: 048
  5. OMEPRAZOLE [Concomitant]
     Indication: GASTROOESOPHAGEAL REFLUX DISEASE
     Dosage: 20 MILLIGRAM
     Route: 048
  6. DOMPERIDONE [Concomitant]
     Indication: GASTROOESOPHAGEAL REFLUX DISEASE
     Dosage: 30 MG DAILY
     Route: 048
     Dates: start: 20110719
  7. HUMIRA [Suspect]
     Dates: start: 20110310, end: 20110310
  8. MESALAMINE [Concomitant]
     Indication: CROHN'S DISEASE
     Dosage: 300MG DAILY
  9. HUMIRA [Suspect]
     Dates: start: 20110324

REACTIONS (2)
  - CHOLELITHIASIS [None]
  - ABDOMINAL PAIN [None]
